FAERS Safety Report 7502334-0 (Version None)
Quarter: 2011Q2

REPORT INFORMATION
  Report Type: 
  Country: None (occurrence: None)
  Receive Date: 20110525
  Receipt Date: 20110511
  Transmission Date: 20111010
  Serious: Yes (Other)
  Sender: FDA-Public Use
  Company Number: AU-JNJFOC-20110505865

PATIENT
  Sex: Female

DRUGS (1)
  1. CODRAL PE NIGHT [Suspect]
     Indication: PRODUCT USED FOR UNKNOWN INDICATION
     Route: 048

REACTIONS (6)
  - HALLUCINATION [None]
  - DIZZINESS [None]
  - HYPERSENSITIVITY [None]
  - ANXIETY [None]
  - PYREXIA [None]
  - MALAISE [None]
